FAERS Safety Report 8427397-X (Version None)
Quarter: 2012Q2

REPORT INFORMATION
  Report Type: 
  Country: None (occurrence: None)
  Receive Date: 20120611
  Receipt Date: 20120601
  Transmission Date: 20120825
  Serious: Yes (Death, Hospitalization)
  Sender: FDA-Public Use
  Company Number: JP-MERCK-1204USA03552

PATIENT
  Age: 64 Year
  Sex: Female
  Weight: 39 kg

DRUGS (2)
  1. DEPAKENE [Concomitant]
     Indication: MANIA
     Dosage: DAILY DOSAGE UNKNOWN
     Route: 065
     Dates: end: 20120406
  2. PRIMAXIN [Suspect]
     Indication: PNEUMONIA
     Route: 042
     Dates: start: 20120417, end: 20120417

REACTIONS (3)
  - GRAND MAL CONVULSION [None]
  - PNEUMONIA [None]
  - CONVULSION [None]
